FAERS Safety Report 8382098-1 (Version None)
Quarter: 2012Q2

REPORT INFORMATION
  Report Type: 
  Country: None (occurrence: None)
  Receive Date: 20120524
  Receipt Date: 20120507
  Transmission Date: 20120825
  Serious: Yes (Other)
  Sender: FDA-Public Use
  Company Number: US-JNJFOC-20120411599

PATIENT
  Age: 47 Year
  Sex: Female

DRUGS (4)
  1. TOPAMAX [Suspect]
     Indication: PRODUCT USED FOR UNKNOWN INDICATION
     Route: 048
  2. GABAPENTIN [Suspect]
     Indication: PRODUCT USED FOR UNKNOWN INDICATION
     Route: 048
  3. PROPRANOLOL [Concomitant]
     Indication: MIGRAINE PROPHYLAXIS
     Route: 065
  4. FIORICET [Concomitant]
     Indication: HEADACHE
     Route: 048

REACTIONS (1)
  - COGNITIVE DISORDER [None]
